FAERS Safety Report 17798095 (Version 1)
Quarter: 2020Q2

REPORT INFORMATION
  Report Type: Spontaneous
  Country: US (occurrence: US)
  Receive Date: 20200518
  Receipt Date: 20200518
  Transmission Date: 20200714
  Serious: Yes (Other)
  Sender: FDA-Public Use
  Company Number: US-VERTEX PHARMACEUTICALS-2020-010897

PATIENT
  Age: 59 Year
  Sex: Female

DRUGS (1)
  1. TRIKAFTA [Suspect]
     Active Substance: ELEXACAFTOR\IVACAFTOR\TEZACAFTOR
     Indication: CYSTIC FIBROSIS
     Dosage: 2 TABS (100MG ELEXACAFTOR/50MG TEZACAFTOR/75MG IVACAFTOR) AND 1 TAB (150MG IVACAFTOR), BID
     Route: 048
     Dates: start: 2019

REACTIONS (2)
  - Cholecystectomy [Unknown]
  - Weight increased [Unknown]

NARRATIVE: CASE EVENT DATE: 2020
